FAERS Safety Report 16510026 (Version 1)
Quarter: 2019Q3

REPORT INFORMATION
  Report Type: Spontaneous
  Country: JP (occurrence: JP)
  Receive Date: 20190702
  Receipt Date: 20190702
  Transmission Date: 20191004
  Serious: Yes (Hospitalization, Other)
  Sender: FDA-Public Use
  Company Number: JP-TEVA-2019-JP-1070279

PATIENT
  Age: 79 Year
  Sex: Female

DRUGS (3)
  1. CALCITRIOL. [Suspect]
     Active Substance: CALCITRIOL
     Indication: OSTEOPOROSIS
     Dosage: .25 MICROGRAM DAILY;
     Route: 065
  2. PREDNISOLONE. [Concomitant]
     Active Substance: PREDNISOLONE
     Indication: RHEUMATOID ARTHRITIS
     Dosage: 5 MILLIGRAM DAILY;
     Route: 065
  3. MAGNESIUM OXIDE. [Suspect]
     Active Substance: MAGNESIUM OXIDE
     Indication: CONSTIPATION
     Dosage: 3 GRAM DAILY;
     Route: 065

REACTIONS (7)
  - Acute kidney injury [Recovering/Resolving]
  - Altered state of consciousness [Recovering/Resolving]
  - Respiratory disorder [Recovering/Resolving]
  - Hypermagnesaemia [Recovered/Resolved]
  - Hypercalcaemia [Recovered/Resolved]
  - Oxygen saturation decreased [Recovering/Resolving]
  - Nephrocalcinosis [Recovering/Resolving]
